FAERS Safety Report 10997668 (Version 2)
Quarter: 2015Q2

REPORT INFORMATION
  Report Type: Spontaneous
  Country: US (occurrence: None)
  Receive Date: 20150406
  Receipt Date: 20150420
  Transmission Date: 20150821
  Serious: Yes (Other)
  Sender: FDA-Public Use
  Company Number: ADR-2015-00647

PATIENT
  Age: 30 Year
  Sex: Male

DRUGS (1)
  1. BACLOFEN INTRATHECAL [Suspect]
     Active Substance: BACLOFEN
     Indication: MUSCLE SPASTICITY

REACTIONS (6)
  - Diplopia [None]
  - Procedural headache [None]
  - VIth nerve paralysis [None]
  - Intracranial hypotension [None]
  - Post procedural complication [None]
  - Medical device complication [None]
